FAERS Safety Report 12217352 (Version 1)
Quarter: 2016Q1

REPORT INFORMATION
  Report Type: Spontaneous
  Country: US (occurrence: US)
  Receive Date: 20160329
  Receipt Date: 20160329
  Transmission Date: 20160526
  Serious: Yes (Hospitalization, Other)
  Sender: FDA-Public Use
  Company Number: US-GLAXOSMITHKLINE-US2016041003

PATIENT
  Age: 57 Year
  Sex: Female

DRUGS (11)
  1. OMEPRAZOLE. [Concomitant]
     Active Substance: OMEPRAZOLE
  2. ASPIRIN. [Concomitant]
     Active Substance: ASPIRIN
  3. LEVOTHYROXINE. [Concomitant]
     Active Substance: LEVOTHYROXINE
  4. GABAPENTIN. [Concomitant]
     Active Substance: GABAPENTIN
  5. PRAVASTATIN [Concomitant]
     Active Substance: PRAVASTATIN\PRAVASTATIN SODIUM
  6. TAMOXIFEN [Concomitant]
     Active Substance: TAMOXIFEN
  7. DILTIAZEM HYDROCHLORIDE EXTENDED RELEASE [Concomitant]
     Active Substance: DILTIAZEM HYDROCHLORIDE
  8. LITHIUM. [Concomitant]
     Active Substance: LITHIUM
  9. LAMICTAL [Suspect]
     Active Substance: LAMOTRIGINE
     Indication: BIPOLAR DISORDER
     Dosage: 200 MG, QD
     Route: 048
     Dates: start: 2012
  10. CITALOPRAM [Concomitant]
     Active Substance: CITALOPRAM HYDROBROMIDE
  11. TOPIRAMATE. [Concomitant]
     Active Substance: TOPIRAMATE

REACTIONS (11)
  - Renal abscess [Recovered/Resolved]
  - Hospitalisation [Recovered/Resolved]
  - Nausea [Recovered/Resolved]
  - Nephrolithiasis [Recovered/Resolved]
  - Nephrectomy [Unknown]
  - Tremor [Recovered/Resolved]
  - Blood urine present [Recovered/Resolved]
  - Pyelonephritis chronic [Recovered/Resolved]
  - Flank pain [Recovered/Resolved]
  - Renal disorder [Recovered/Resolved]
  - Muscle rigidity [Recovered/Resolved]

NARRATIVE: CASE EVENT DATE: 2015
